FAERS Safety Report 5062089-9 (Version None)
Quarter: 2006Q3

REPORT INFORMATION
  Report Type: 
  Country: None (occurrence: None)
  Receive Date: 20060726
  Receipt Date: 20060721
  Transmission Date: 20061208
  Serious: Yes (Death)
  Sender: FDA-Public Use
  Company Number: PHBS2006JP10965

PATIENT
  Age: 78 Year
  Sex: Female

DRUGS (5)
  1. DIGOXIN [Concomitant]
     Dosage: 0.125 MG/DAY
     Route: 048
     Dates: start: 20050531, end: 20060606
  2. AMARYL [Concomitant]
     Dosage: 4 MG/DAY
     Route: 048
     Dates: start: 20050531, end: 20060606
  3. BASEN [Concomitant]
     Dosage: 0.9 MG/DAY
     Route: 048
     Dates: start: 20050531, end: 20060606
  4. DIOVAN [Suspect]
     Indication: HYPERTENSION
     Dosage: 40 MG/DAY
     Route: 048
     Dates: start: 20060306, end: 20060402
  5. DIOVAN [Suspect]
     Dosage: 80 MG/DAY
     Route: 048
     Dates: start: 20060514, end: 20060606

REACTIONS (1)
  - RESPIRATORY ARREST [None]
